FAERS Safety Report 8579822-1 (Version None)
Quarter: 2012Q3

REPORT INFORMATION
  Report Type: 
  Country: None (occurrence: None)
  Receive Date: 20120808
  Receipt Date: 20120730
  Transmission Date: 20120928
  Serious: Yes (Hospitalization)
  Sender: FDA-Public Use
  Company Number: FR-ASTRAZENECA-2012SE53828

PATIENT
  Age: 72 Year
  Sex: Female
  Weight: 56 kg

DRUGS (7)
  1. NEXIUM [Suspect]
     Route: 048
     Dates: start: 20120401, end: 20120603
  2. SECTRAL [Concomitant]
     Indication: CORONARY ARTERY STENOSIS
     Dates: start: 20100101
  3. ESIDRIX [Suspect]
     Route: 048
     Dates: start: 20120401, end: 20120603
  4. ATACAND [Suspect]
     Route: 048
     Dates: start: 20120401, end: 20120603
  5. PLAVIX [Concomitant]
     Indication: CORONARY ARTERY STENOSIS
     Route: 048
     Dates: start: 20100101
  6. ACETAMINOPHEN [Concomitant]
  7. FLAGYL [Suspect]
     Route: 048
     Dates: start: 20120401

REACTIONS (1)
  - VASCULAR PURPURA [None]
